FAERS Safety Report 25671799 (Version 1)
Quarter: 2025Q3

REPORT INFORMATION
  Report Type: Report from Study
  Country: CA (occurrence: CA)
  Receive Date: 20250812
  Receipt Date: 20250812
  Transmission Date: 20251020
  Serious: Yes (Other)
  Sender: AMARIN
  Company Number: CA-Amarin Pharma  Inc-2025AMR000536

PATIENT
  Age: 67 Year
  Sex: Female

DRUGS (1)
  1. VASCEPA [Suspect]
     Active Substance: ICOSAPENT ETHYL
     Indication: Cardiovascular disorder
     Dates: start: 20221128

REACTIONS (1)
  - Plasma cell myeloma [Unknown]

NARRATIVE: CASE EVENT DATE: 20250530
